FAERS Safety Report 7355383-X (Version None)
Quarter: 2011Q1

REPORT INFORMATION
  Report Type: 
  Country: None (occurrence: None)
  Receive Date: 20110316
  Receipt Date: 20110310
  Transmission Date: 20110831
  Serious: Yes (Life-Threatening, Other)
  Sender: FDA-Public Use
  Company Number: JP-ROCHE-765098

PATIENT
  Sex: Female

DRUGS (19)
  1. TOCILIZUMAB [Suspect]
     Route: 041
     Dates: start: 20090114, end: 20090114
  2. TOCILIZUMAB [Suspect]
     Route: 041
     Dates: start: 20090218, end: 20090218
  3. TOCILIZUMAB [Suspect]
     Route: 041
     Dates: start: 20091021, end: 20091021
  4. TOCILIZUMAB [Suspect]
     Indication: RHEUMATOID ARTHRITIS
     Route: 041
     Dates: start: 20081217, end: 20081217
  5. TOCILIZUMAB [Suspect]
     Route: 041
     Dates: start: 20091118, end: 20091118
  6. PREDONINE [Concomitant]
     Route: 048
  7. NORVASC [Concomitant]
     Dosage: FORM: PERORAL AGENT
     Route: 048
  8. TOCILIZUMAB [Suspect]
     Route: 041
     Dates: start: 20090617, end: 20090617
  9. TOCILIZUMAB [Suspect]
     Route: 041
     Dates: start: 20090924, end: 20090924
  10. TOCILIZUMAB [Suspect]
     Route: 041
     Dates: start: 20091216, end: 20091216
  11. ALLEGRA [Concomitant]
     Dosage: PERORAL AGENT
     Route: 048
     Dates: start: 20090422
  12. HYALEIN [Concomitant]
     Dosage: EYE DROP. UNCERTAIN DOSAGE AND SINGLE USE
     Route: 047
  13. OMEPRAL [Concomitant]
     Dosage: PERORAL AGENT
     Route: 048
  14. TOCILIZUMAB [Suspect]
     Route: 041
     Dates: start: 20090318, end: 20090318
  15. TOCILIZUMAB [Suspect]
     Route: 041
     Dates: start: 20090520, end: 20090520
  16. VOLTAREN [Concomitant]
     Route: 054
  17. MICARDIS [Concomitant]
     Route: 048
  18. VOLTAREN [Concomitant]
     Route: 054
  19. NORVASC [Concomitant]
     Dosage: PERORAL AGENT
     Route: 048

REACTIONS (2)
  - DISSEMINATED INTRAVASCULAR COAGULATION [None]
  - PANCREATITIS ACUTE [None]
